FAERS Safety Report 5337545-6 (Version None)
Quarter: 2007Q2

REPORT INFORMATION
  Report Type: 
  Country: None (occurrence: None)
  Receive Date: 20070524
  Receipt Date: 20070515
  Transmission Date: 20071010
  Serious: Yes (Hospitalization)
  Sender: FDA-Public Use
  Company Number: 2007SP001803

PATIENT
  Age: 46 Year
  Sex: Male
  Weight: 127.0072 kg

DRUGS (6)
  1. LUNESTA [Suspect]
     Indication: INSOMNIA
     Dosage: 3 MG; HS; ORAL
     Route: 048
     Dates: start: 20070502, end: 20070508
  2. PANTOPRAZOLE SODIUM (40 MG) [Suspect]
     Indication: DYSPEPSIA
     Dosage: 40 MG; QD; ORAL
     Route: 048
     Dates: start: 20070502, end: 20070508
  3. PANTOPRAZOLE SODIUM [Concomitant]
  4. IBUPROFEN [Concomitant]
  5. AGGRENOX [Concomitant]
  6. SIMVASTATIN [Concomitant]

REACTIONS (8)
  - BLOOD PRESSURE SYSTOLIC INCREASED [None]
  - CEREBROVASCULAR ACCIDENT [None]
  - HYPOAESTHESIA [None]
  - INTERVERTEBRAL DISC DISORDER [None]
  - LACUNAR INFARCTION [None]
  - OXYGEN SATURATION DECREASED [None]
  - PARAESTHESIA [None]
  - RED BLOOD CELL SEDIMENTATION RATE INCREASED [None]
